FAERS Safety Report 6785729-2 (Version None)
Quarter: 2010Q2

REPORT INFORMATION
  Report Type: 
  Country: None (occurrence: None)
  Receive Date: 20100623
  Receipt Date: 20100616
  Transmission Date: 20101027
  Serious: Yes (Life-Threatening, Hospitalization, Other)
  Sender: FDA-Public Use
  Company Number: PHHY2008DE30595

PATIENT
  Sex: Female

DRUGS (8)
  1. TASIGNA [Suspect]
     Indication: CHRONIC MYELOID LEUKAEMIA
     Dosage: 200 MG, BID
     Route: 048
     Dates: start: 20080229
  2. TASIGNA [Suspect]
     Dosage: 200 MG/DAY
     Route: 048
     Dates: start: 20080328
  3. PANGROL ^BERLIN-CHEMIE^ [Concomitant]
     Dosage: UNK
     Route: 048
     Dates: start: 20080101
  4. URSO FALK [Concomitant]
     Dosage: UNK
     Route: 048
     Dates: start: 20071101
  5. LASIX [Concomitant]
     Dosage: UNK
     Route: 048
     Dates: start: 20071101
  6. ALLOPURINOL [Concomitant]
     Dosage: UNK
     Route: 048
     Dates: start: 20071101
  7. NEXIUM [Concomitant]
     Dosage: UNK
     Route: 048
     Dates: start: 20071101
  8. PREDNISOLONE [Concomitant]
     Dosage: UNK
     Route: 048
     Dates: start: 20071101

REACTIONS (10)
  - ALANINE AMINOTRANSFERASE INCREASED [None]
  - GAMMA-GLUTAMYLTRANSFERASE INCREASED [None]
  - HAEMOGLOBIN DECREASED [None]
  - HYSTERECTOMY [None]
  - LEUKOPENIA [None]
  - MENORRHAGIA [None]
  - SARCOMA UTERUS [None]
  - TRANSFUSION [None]
  - UPPER RESPIRATORY TRACT INFECTION [None]
  - UTERINE DILATION AND CURETTAGE [None]
